FAERS Safety Report 8460811-2 (Version None)
Quarter: 2012Q2

REPORT INFORMATION
  Report Type: 
  Country: None (occurrence: None)
  Receive Date: 20120624
  Receipt Date: 20120423
  Transmission Date: 20120825
  Serious: Yes (Death)
  Sender: FDA-Public Use
  Company Number: PHHY2007KR01128

PATIENT
  Sex: Male
  Weight: 62 kg

DRUGS (1)
  1. EXJADE [Suspect]
     Indication: ACUTE MYELOID LEUKAEMIA
     Dosage: 1000 MG, QD
     Route: 048
     Dates: start: 20070503, end: 20071025

REACTIONS (3)
  - RASH [None]
  - PNEUMONIA [None]
  - DISCOMFORT [None]
